FAERS Safety Report 7815997-7 (Version None)
Quarter: 2011Q4

REPORT INFORMATION
  Report Type: 
  Country: None (occurrence: None)
  Receive Date: 20111014
  Receipt Date: 20111006
  Transmission Date: 20120403
  Serious: Yes (Other)
  Sender: FDA-Public Use
  Company Number: AU-ROCHE-1002735

PATIENT

DRUGS (2)
  1. AVASTIN [Suspect]
     Dosage: RE-INITIATED THE DRUG.
  2. AVASTIN [Suspect]
     Indication: PRODUCT USED FOR UNKNOWN INDICATION
     Dosage: PATIENT WAS ON AVASTIN FOR 3 MONTHS.

REACTIONS (1)
  - CARDIOMYOPATHY [None]
